FAERS Safety Report 5311951-8 (Version None)
Quarter: 2007Q2

REPORT INFORMATION
  Report Type: 
  Country: None (occurrence: None)
  Receive Date: 20070430
  Receipt Date: 20060612
  Transmission Date: 20071010
  Serious: No
  Sender: FDA-Public Use
  Company Number: 2006UW12467

PATIENT
  Age: 44 Year
  Sex: Female

DRUGS (9)
  1. NEXIUM [Suspect]
     Indication: GASTROOESOPHAGEAL REFLUX DISEASE
     Route: 048
  2. NEXIUM [Suspect]
     Indication: ASTHMA
     Route: 048
  3. NEXIUM [Suspect]
     Route: 048
  4. NEXIUM [Suspect]
     Route: 048
  5. PRILOSEC OTC [Suspect]
     Route: 048
  6. HYDROCHLOROTHIAZIDE [Concomitant]
  7. DILTIAZEM [Concomitant]
  8. ALBUTEROL NEB SOLUTION [Concomitant]
  9. MDI ADVAIR [Concomitant]

REACTIONS (3)
  - DIZZINESS [None]
  - HALLUCINATION [None]
  - LETHARGY [None]
